FAERS Safety Report 5202818-4 (Version None)
Quarter: 2006Q4

REPORT INFORMATION
  Report Type: 
  Country: None (occurrence: None)
  Receive Date: 20061018
  Receipt Date: 20030818
  Transmission Date: 20070319
  Serious: Yes (Other)
  Sender: FDA-Public Use
  Company Number: PHEH2003US07587

PATIENT
  Age: 75 Year
  Sex: Female
  Weight: 66.2 kg

DRUGS (3)
  1. ZOMETA [Suspect]
     Indication: DRUG USE FOR UNKNOWN INDICATION
     Dosage: 4 MG EVERY 4 WEEKS, INTRAVENOUS
     Route: 042
     Dates: start: 20020709, end: 20030610
  2. HYDROCODONE BITARTRATE [Concomitant]
  3. SYNTHROID [Concomitant]

REACTIONS (2)
  - BACK PAIN [None]
  - BLOOD CREATININE INCREASED [None]
